FAERS Safety Report 5521456-7 (Version None)
Quarter: 2007Q4

REPORT INFORMATION
  Report Type: 
  Country: None (occurrence: None)
  Receive Date: 20071119
  Receipt Date: 20071108
  Transmission Date: 20080405
  Serious: Yes (Other)
  Sender: FDA-Public Use
  Company Number: US-PFIZER INC-2007000713

PATIENT
  Sex: Female

DRUGS (7)
  1. LOPID [Suspect]
     Route: 048
     Dates: start: 20040101, end: 20050101
  2. ATACAND [Concomitant]
  3. HYDROCODONE BITARTRATE [Concomitant]
  4. LIPITOR [Concomitant]
  5. BEXTRA [Concomitant]
  6. OS-CAL [Concomitant]
  7. ESTRACE [Concomitant]

REACTIONS (4)
  - ANXIETY [None]
  - MALAISE [None]
  - PAIN [None]
  - UNEVALUABLE EVENT [None]
